FAERS Safety Report 13509224 (Version 2)
Quarter: 2018Q2

REPORT INFORMATION
  Report Type: Spontaneous
  Country: US (occurrence: US)
  Receive Date: 20170503
  Receipt Date: 20180418
  Transmission Date: 20180711
  Serious: Yes (Death, Hospitalization)
  Sender: FDA-Public Use
  Company Number: US-B.I. PHARMACEUTICALS,INC./RIDGEFIELD-2017-BI-024904

PATIENT
  Age: 66 Year
  Sex: Female
  Weight: 63.09 kg

DRUGS (2)
  1. PRADAXA [Suspect]
     Active Substance: DABIGATRAN ETEXILATE MESYLATE
     Indication: ATRIAL FIBRILLATION
     Dosage: DO NOT BREAK, CHEW OR OPEN CAPSULE. KEEP IN BLISTER PACK.?TAKE WITH A FULL GLASS OF WATER.
     Route: 048
     Dates: start: 20160309, end: 20160524
  2. AMIODARONE [Concomitant]
     Active Substance: AMIODARONE
     Indication: ATRIAL FIBRILLATION
     Route: 065

REACTIONS (4)
  - Anaemia [Unknown]
  - Internal haemorrhage [Fatal]
  - Cardiac arrest [Fatal]
  - Gastrointestinal haemorrhage [Fatal]

NARRATIVE: CASE EVENT DATE: 20160519
